FAERS Safety Report 8537644-1 (Version None)
Quarter: 2012Q3

REPORT INFORMATION
  Report Type: 
  Country: None (occurrence: None)
  Receive Date: 20120725
  Receipt Date: 20120719
  Transmission Date: 20120928
  Serious: Yes (Other)
  Sender: FDA-Public Use
  Company Number: PHHY2012PH061351

PATIENT
  Sex: Male

DRUGS (4)
  1. DAPSONE [Suspect]
     Indication: LEPROSY
     Route: 048
     Dates: start: 20111001, end: 20120701
  2. RIFAMPICIN [Suspect]
     Indication: LEPROSY
     Route: 048
     Dates: start: 20111001, end: 20120701
  3. CLOFAZIMINE [Suspect]
     Indication: LEPROSY
     Route: 048
     Dates: start: 20111001, end: 20120701
  4. METFORMIN HYDROCHLORIDE [Concomitant]
     Indication: DIABETES MELLITUS
     Dosage: 500 MG, BID

REACTIONS (1)
  - BLOOD CREATININE INCREASED [None]
